FAERS Safety Report 15060010 (Version 2)
Quarter: 2018Q4

REPORT INFORMATION
  Report Type: Report from Study
  Country: CA (occurrence: CA)
  Receive Date: 20180625
  Receipt Date: 20181122
  Transmission Date: 20190204
  Serious: Yes (Other)
  Sender: FDA-Public Use
  Company Number: CA-JNJFOC-20180623950

PATIENT
  Sex: Female
  Weight: 105 kg

DRUGS (1)
  1. REMICADE [Suspect]
     Active Substance: INFLIXIMAB
     Indication: PSORIASIS
     Dosage: STRENGTH = 100 MG
     Route: 042

REACTIONS (2)
  - Lung neoplasm malignant [Unknown]
  - Chest X-ray abnormal [Recovered/Resolved]
